FAERS Safety Report 6603636-2 (Version None)
Quarter: 2010Q1

REPORT INFORMATION
  Report Type: 
  Country: None (occurrence: None)
  Receive Date: 20100226
  Receipt Date: 20100209
  Transmission Date: 20100710
  Serious: No
  Sender: FDA-Public Use
  Company Number: A0835748A

PATIENT
  Sex: Female

DRUGS (2)
  1. VALTREX [Suspect]
     Route: 048
     Dates: start: 20091201
  2. ACYCLOVIR [Suspect]
     Route: 065

REACTIONS (2)
  - HYPERSENSITIVITY [None]
  - URTICARIA [None]
